FAERS Safety Report 15012939 (Version 1)
Quarter: 2018Q2

REPORT INFORMATION
  Report Type: Spontaneous
  Country: US (occurrence: US)
  Receive Date: 20180614
  Receipt Date: 20180614
  Transmission Date: 20180711
  Serious: No
  Sender: FDA-Public Use
  Company Number: US-BAYER-2018-110160

PATIENT
  Age: 64 Year
  Sex: Female

DRUGS (3)
  1. RANITIDINE. [Concomitant]
     Active Substance: RANITIDINE
     Dosage: UNK
  2. ALEVE [Suspect]
     Active Substance: NAPROXEN SODIUM
     Dosage: UNK
  3. ADVIL [Concomitant]
     Active Substance: IBUPROFEN
     Dosage: UNK

REACTIONS (1)
  - Drug ineffective [Unknown]
